FAERS Safety Report 22165922 (Version 3)
Quarter: 2023Q2

REPORT INFORMATION
  Report Type: Spontaneous
  Country: US (occurrence: US)
  Receive Date: 20230403
  Receipt Date: 20230407
  Transmission Date: 20230721
  Serious: No
  Sender: FDA-Public Use
  Company Number: US-002147023-NVSC2023US076204

PATIENT
  Sex: Female

DRUGS (1)
  1. XIIDRA [Suspect]
     Active Substance: LIFITEGRAST
     Indication: Product used for unknown indication
     Dosage: UNK
     Route: 047

REACTIONS (8)
  - Cough [Unknown]
  - Nasal congestion [Unknown]
  - Rash [Unknown]
  - Oropharyngeal discomfort [Unknown]
  - Asthenopia [Unknown]
  - Fatigue [Unknown]
  - Headache [Unknown]
  - Vision blurred [Unknown]
